FAERS Safety Report 9991807 (Version 1)
Quarter: 2014Q1

REPORT INFORMATION
  Report Type: Spontaneous
  Country: FR (occurrence: FR)
  Receive Date: 20140310
  Receipt Date: 20140310
  Transmission Date: 20141002
  Serious: Yes (Hospitalization)
  Sender: FDA-Public Use
  Company Number: FR-PFIZER INC-2014064704

PATIENT
  Age: 87 Year
  Sex: Female

DRUGS (6)
  1. LYRICA [Suspect]
     Dosage: 75 MG, 4X/DAY
     Route: 048
  2. SERESTA [Suspect]
     Dosage: 10 MG, UNK
     Route: 048
  3. NOCTAMID [Suspect]
     Dosage: 2 MG, 1X/DAY
     Route: 048
  4. PREVISCAN [Concomitant]
     Dosage: 20 MG, UNK
  5. LASILIX [Concomitant]
     Dosage: 40 MG, UNK
  6. ALDACTONE [Concomitant]
     Dosage: 25 MG, UNK

REACTIONS (4)
  - Malaise [Recovered/Resolved with Sequelae]
  - Fall [Recovered/Resolved with Sequelae]
  - Femoral neck fracture [Recovered/Resolved with Sequelae]
  - Vertigo [Unknown]
